FAERS Safety Report 17158444 (Version 1)
Quarter: 2019Q4

REPORT INFORMATION
  Report Type: Spontaneous
  Country: US (occurrence: US)
  Receive Date: 20191213
  Receipt Date: 20191213
  Transmission Date: 20200122
  Serious: Yes (Hospitalization)
  Sender: FDA-Public Use
  Company Number: None

PATIENT
  Age: 52 Year
  Sex: Male
  Weight: 107.7 kg

DRUGS (4)
  1. METOPROLOL TARTRATE 25MG DAILY [Concomitant]
  2. MULTIVITAMIN DAILY [Concomitant]
  3. LEVOTHYROXINE 112MCG DAILY [Concomitant]
  4. RIVAROXABAN [Suspect]
     Active Substance: RIVAROXABAN
     Indication: ATRIAL FIBRILLATION
     Route: 048
     Dates: start: 20150909

REACTIONS (5)
  - Atrial fibrillation [None]
  - Haematochezia [None]
  - Abdominal pain [None]
  - Dizziness [None]
  - Fatigue [None]

NARRATIVE: CASE EVENT DATE: 20160131
